FAERS Safety Report 7765958-1 (Version None)
Quarter: 2011Q3

REPORT INFORMATION
  Report Type: 
  Country: None (occurrence: None)
  Receive Date: 20110921
  Receipt Date: 20090121
  Transmission Date: 20111222
  Serious: Yes (Death, Hospitalization, Other)
  Sender: FDA-Public Use
  Company Number: PHEH2009US19086

PATIENT
  Sex: Female

DRUGS (13)
  1. MORPHINE [Concomitant]
  2. PREDNISONE [Concomitant]
     Dosage: 5 MG, BID
     Route: 048
  3. AREDIA [Suspect]
     Indication: BREAST CANCER METASTATIC
  4. NEURONTIN [Concomitant]
  5. ATIVAN [Concomitant]
     Dosage: 1 MG, BID
  6. ZOMETA [Suspect]
     Indication: BREAST CANCER METASTATIC
     Route: 042
  7. CATAPRES                                /USA/ [Concomitant]
     Dosage: 0.1 MG, QW
  8. CLINDAMYCIN [Concomitant]
     Dosage: 300 MG, TID
     Route: 048
  9. OXYCONTIN [Concomitant]
     Dosage: 20 MG, BID
     Route: 048
  10. METHOTREXATE [Concomitant]
  11. ROXICET [Concomitant]
  12. FLAGYL [Concomitant]
  13. ZANTAC [Concomitant]
     Dosage: 150 MG, BID
     Route: 048

REACTIONS (19)
  - IMPAIRED WORK ABILITY [None]
  - TOOTHACHE [None]
  - METASTASES TO BONE [None]
  - HYPERTENSION [None]
  - DISABILITY [None]
  - PAIN IN JAW [None]
  - NEUROPATHY PERIPHERAL [None]
  - OSTEONECROSIS OF JAW [None]
  - BACK PAIN [None]
  - MUSCULAR WEAKNESS [None]
  - DEFORMITY [None]
  - ANXIETY [None]
  - DEATH [None]
  - ARTHRITIS [None]
  - OSTEOMYELITIS [None]
  - JAW FRACTURE [None]
  - SWELLING FACE [None]
  - PAIN [None]
  - ANHEDONIA [None]
